FAERS Safety Report 9915760 (Version 1)
Quarter: 2014Q1

REPORT INFORMATION
  Report Type: Spontaneous
  Country: US (occurrence: None)
  Receive Date: 20140219
  Receipt Date: 20140219
  Transmission Date: 20141002
  Serious: Yes (Hospitalization)
  Sender: FDA-Public Use
  Company Number: None

PATIENT
  Age: 69 Year
  Sex: Male
  Weight: 105 kg

DRUGS (2)
  1. MELOXICAM [Suspect]
     Indication: NECK PAIN
     Route: 048
     Dates: start: 20110314, end: 20131126
  2. MELOXICAM [Suspect]
     Indication: BACK PAIN
     Route: 048
     Dates: start: 20110314, end: 20131126

REACTIONS (4)
  - Oesophageal ulcer [None]
  - Gastrointestinal haemorrhage [None]
  - Gastritis [None]
  - Gastric ulcer [None]
